FAERS Safety Report 18435584 (Version 1)
Quarter: 2020Q4

REPORT INFORMATION
  Report Type: Spontaneous
  Country: US (occurrence: US)
  Receive Date: 20201028
  Receipt Date: 20201028
  Transmission Date: 20210114
  Serious: No
  Sender: FDA-Public Use
  Company Number: None

PATIENT
  Age: 62 Year
  Sex: Female
  Weight: 129.5 kg

DRUGS (1)
  1. REMDESIVIR 100MG [Suspect]
     Active Substance: REMDESIVIR
     Indication: COVID-19
     Route: 042
     Dates: start: 20201026

REACTIONS (1)
  - Accidental exposure to product [None]

NARRATIVE: CASE EVENT DATE: 20201027
